FAERS Safety Report 9416885 (Version 1)
Quarter: 2013Q3

REPORT INFORMATION
  Report Type: Spontaneous
  Country: CO (occurrence: CO)
  Receive Date: 20130724
  Receipt Date: 20130724
  Transmission Date: 20140515
  Serious: Yes (Hospitalization, Other)
  Sender: FDA-Public Use
  Company Number: CO-JNJFOC-20130613069

PATIENT
  Age: 20 Year
  Sex: Female
  Weight: 59 kg

DRUGS (4)
  1. RISPERIDONE [Suspect]
     Indication: SCHIZOPHRENIA, UNDIFFERENTIATED TYPE
     Route: 065
  2. INVEGA [Suspect]
     Indication: SCHIZOPHRENIA, UNDIFFERENTIATED TYPE
     Route: 048
  3. ARIPIPRAZOLE [Concomitant]
     Route: 065
  4. ASENAPINE [Concomitant]
     Route: 065

REACTIONS (5)
  - Extrapyramidal disorder [Not Recovered/Not Resolved]
  - Hyperprolactinaemia [Not Recovered/Not Resolved]
  - Hypersexuality [Recovered/Resolved]
  - Cognitive disorder [Not Recovered/Not Resolved]
  - Confusional state [Not Recovered/Not Resolved]
